FAERS Safety Report 5941487-2 (Version None)
Quarter: 2008Q4

REPORT INFORMATION
  Report Type: 
  Country: None (occurrence: None)
  Receive Date: 20081105
  Receipt Date: 20081029
  Transmission Date: 20090506
  Serious: Yes (Death, Hospitalization)
  Sender: FDA-Public Use
  Company Number: US-ROCHE-594325

PATIENT
  Age: 58 Year
  Sex: Male
  Weight: 90.7 kg

DRUGS (1)
  1. XELODA [Suspect]
     Indication: RECTAL CANCER
     Dosage: DOSAGE: 800 MG/MM3,
     Route: 048

REACTIONS (5)
  - DEATH [None]
  - DEHYDRATION [None]
  - DIARRHOEA [None]
  - MUCOSAL INFLAMMATION [None]
  - RENAL FAILURE [None]
